FAERS Safety Report 5860979-8 (Version None)
Quarter: 2008Q3

REPORT INFORMATION
  Report Type: 
  Country: None (occurrence: None)
  Receive Date: 20080826
  Receipt Date: 20080812
  Transmission Date: 20090109
  Serious: Yes (Hospitalization, Other)
  Sender: FDA-Public Use
  Company Number: 2008AL005302

PATIENT
  Age: 73 Year
  Sex: Female
  Weight: 106.5953 kg

DRUGS (17)
  1. DIGOXIN [Suspect]
     Indication: ATRIAL FIBRILLATION
     Dosage: 0.125 MG, DAILY, PO
     Route: 048
     Dates: start: 20060212
  2. DIGOXIN [Suspect]
     Indication: HEART RATE IRREGULAR
     Dosage: 0.125 MG, DAILY, PO
     Route: 048
     Dates: start: 20060212
  3. LEVOTHYROXINE SODIUM [Concomitant]
  4. GABAPENTIN [Concomitant]
  5. BUMEX [Concomitant]
  6. COUMADIN [Concomitant]
  7. ALTACE [Concomitant]
  8. ACE INHIBITOR (UNSPECIFIED) [Concomitant]
  9. LASIX [Concomitant]
  10. ATENOLOL [Concomitant]
  11. LEVOXYL [Concomitant]
  12. GLYBURIDE [Concomitant]
  13. POTASSIUM CHLORIDE [Concomitant]
  14. CARDIZEM [Concomitant]
  15. METFORMIN HCL [Concomitant]
  16. LOVASTATIN [Concomitant]
  17. DIAZEPAM [Concomitant]

REACTIONS (14)
  - ACTIVATED PARTIAL THROMBOPLASTIN TIME PROLONGED [None]
  - BLOOD PRESSURE DECREASED [None]
  - CARDIAC FAILURE [None]
  - CARDIOMEGALY [None]
  - HEART RATE DECREASED [None]
  - HYPERKALAEMIA [None]
  - HYPERMAGNESAEMIA [None]
  - INTERNATIONAL NORMALISED RATIO INCREASED [None]
  - OCCULT BLOOD [None]
  - OLIGURIA [None]
  - PROTHROMBIN TIME PROLONGED [None]
  - RENAL FAILURE ACUTE [None]
  - SHOCK [None]
  - THERAPEUTIC AGENT TOXICITY [None]
